FAERS Safety Report 8678720 (Version 2)
Quarter: 2013Q2

REPORT INFORMATION
  Report Type: Spontaneous
  Country: US (occurrence: None)
  Receive Date: 20120406
  Receipt Date: 20120705
  Transmission Date: 20140414
  Serious: Yes (Hospitalization)
  Sender: FDA-Public Use
  Company Number: US-CYPR-2012-000003

PATIENT
  Age: 69 Year
  Sex: Male
  Weight: 73 kg

DRUGS (6)
  1. CLOPIDOGREL [Suspect]
     Indication: ANTIPLATELET THERAPY
     Dosage: (75 MG ORAL)?
     Route: 048
     Dates: start: 20101130
  2. ASPIRIN [Suspect]
     Indication: CORONARY ARTERY DISEASE
     Dosage: (81 MG ORAL)
     Route: 048
     Dates: start: 20091203
  3. PRAVASTATIN [Concomitant]
  4. OMEPRAZOLE [Concomitant]
  5. CYPHER STENT [Concomitant]
  6. XIENCE   XIENCE  V [Concomitant]

REACTIONS (1)
  - NON-CARDIAC CHEST PAIN [None]
